FAERS Safety Report 8310375 (Version 4)
Quarter: 2012Q4

REPORT INFORMATION
  Report Type: 
  Country: IE (occurrence: IE)
  Receive Date: 20111223
  Receipt Date: 20121123
  Transmission Date: 20130627
  Serious: Yes (Other)
  Sender: FDA-Public Use
  Company Number: IE-PFIZER INC-2011308687

PATIENT
  Age: 7 Year
  Sex: Female
  Weight: 19.5 kg

DRUGS (1)
  1. GENOTROPIN [Suspect]
     Indication: GROWTH HORMONE ABNORMAL
     Dosage: 0.5 mg, daily
     Route: 030
     Dates: start: 201109

REACTIONS (2)
  - Synovial cyst [Not Recovered/Not Resolved]
  - Incorrect route of drug administration [Unknown]
